FAERS Safety Report 7426609-9 (Version None)
Quarter: 2011Q2

REPORT INFORMATION
  Report Type: 
  Country: None (occurrence: None)
  Receive Date: 20110420
  Receipt Date: 20110419
  Transmission Date: 20111010
  Serious: Yes (Death)
  Sender: FDA-Public Use
  Company Number: BR-GILEAD-2011-0038265

PATIENT
  Sex: Male
  Weight: 55 kg

DRUGS (8)
  1. VIREAD [Suspect]
     Indication: HIV INFECTION
     Dates: start: 20110110, end: 20110306
  2. CLOPIDOGREL [Concomitant]
     Indication: VENTRICULAR DYSFUNCTION
     Dates: start: 20110114, end: 20110206
  3. ACETYLSALICYLIC ACID SRT [Concomitant]
     Indication: ISCHAEMIC HEART DISEASE PROPHYLAXIS
     Dates: start: 20110112, end: 20110206
  4. ATORVASTATIN [Concomitant]
     Indication: VENTRICULAR DYSFUNCTION
     Dates: start: 20110112, end: 20110206
  5. DAPSONE [Concomitant]
     Indication: ANTIFUNGAL PROPHYLAXIS
     Dates: start: 20110115, end: 20110306
  6. KALETRA [Concomitant]
     Indication: HIV INFECTION
     Dates: start: 20110103, end: 20110206
  7. LAMIVUDINE [Concomitant]
     Indication: HIV INFECTION
     Route: 048
     Dates: start: 20110110, end: 20110306
  8. ENALAPRIL MALEATE [Concomitant]
     Indication: VENTRICULAR DYSFUNCTION
     Dates: start: 20110214

REACTIONS (1)
  - DEATH [None]
